FAERS Safety Report 8028486 (Version 8)
Quarter: 2013Q2

REPORT INFORMATION
  Report Type: Spontaneous
  Country: US (occurrence: None)
  Receive Date: 20110610
  Receipt Date: 20130507
  Transmission Date: 20140414
  Serious: Yes (Hospitalization, Other)
  Sender: FDA-Public Use
  Company Number: 2011028797

PATIENT
  Age: 60 Year
  Sex: Female
  Weight: 106.6 kg

DRUGS (31)
  1. HIZENTRA [Suspect]
     Indication: HYPOGAMMAGLOBULINAEMIA
     Route: 058
     Dates: start: 20110413
  2. HIZENTRA [Suspect]
     Indication: SELECTIVE IGA IMMUNODEFICIENCY
     Route: 058
     Dates: start: 20110413
  3. HIZENTRA [Suspect]
     Indication: SELECTIVE IGM IMMUNODEFICIENCY
     Route: 058
     Dates: start: 20110413
  4. HIZENTRA [Suspect]
     Indication: IMMUNODEFICIENCY COMMON VARIABLE
     Route: 058
     Dates: start: 20110413
  5. HIZENTRA [Suspect]
     Indication: IMMUNODEFICIENCY
     Route: 058
     Dates: start: 20110413
  6. LASIX [Concomitant]
  7. AMARYL [Concomitant]
  8. SYNTHROID (LEVOTHYROXINE SODIUM) [Concomitant]
  9. TRAMADOL HYDROCHLORIDE [Concomitant]
  10. ATENOLOL (ATENOLOL) [Concomitant]
  11. NORTRIPTYLINE HYDROCHLORIDE [Concomitant]
  12. GABAPENTIN (GABAPENTIN) [Concomitant]
  13. PRAVASTATIN [Concomitant]
  14. ISOSORBIDE (ISOSORBIDE) [Concomitant]
  15. SORIATAINE (ACITRETIN) [Concomitant]
  16. CLOBETASOL (CLOBETASOL) [Concomitant]
  17. FLONASE (FLUTICAONE PROPIONATE) [Concomitant]
  18. ADVAIR HFA [Concomitant]
  19. ESTRADIOL [Concomitant]
  20. CLARITIN [Concomitant]
  21. DUONEB (COMBIVENT) [Concomitant]
  22. AZITHROMYCIN [Concomitant]
  23. METHOTREXATE [Concomitant]
  24. FOLIC ACID [Concomitant]
  25. PREDNISONE TAPER (PREDNISONE) [Concomitant]
  26. DEXILANT [Concomitant]
  27. KEFLEX (CEFALEXIN) [Concomitant]
  28. OXYGEN (OXYGEN) [Concomitant]
  29. TRIAMCINOLONE (TRIAMCINOLONE) [Concomitant]
  30. EFFEXOR XR (VENLAFAXINE HYDROCHLORIDE) (75 MILLIGRAM, CAPSULE) (VENLAFAXINE HYDROCHLORIDE) [Concomitant]
  31. RESTASIS (CICLOSPORIN) [Concomitant]

REACTIONS (14)
  - INFUSION SITE ERYTHEMA [None]
  - INFUSION SITE PAIN [None]
  - UPPER RESPIRATORY TRACT INFECTION [None]
  - SINUSITIS [None]
  - GASTROENTERITIS VIRAL [None]
  - Gastroenteritis viral [None]
  - Chills [None]
  - Infusion related reaction [None]
  - Thyroid neoplasm [None]
  - Infusion related reaction [None]
  - Headache [None]
  - Bronchitis [None]
  - Nasal congestion [None]
  - Drug ineffective [None]
